FAERS Safety Report 21492892 (Version 2)
Quarter: 2022Q4

REPORT INFORMATION
  Report Type: Spontaneous
  Country: US (occurrence: US)
  Receive Date: 20221021
  Receipt Date: 20221110
  Transmission Date: 20230112
  Serious: Yes (Hospitalization, Other)
  Sender: FDA-Public Use
  Company Number: US-BAYER-2022A141816

PATIENT
  Age: 57 Year
  Sex: Female

DRUGS (4)
  1. ADEMPAS [Suspect]
     Active Substance: RIOCIGUAT
     Indication: Pulmonary arterial hypertension
     Dosage: 1 MG, QD
     Dates: start: 20221004
  2. AMBRISENTAN [Suspect]
     Active Substance: AMBRISENTAN
     Indication: Pulmonary arterial hypertension
     Dosage: 10 MG, QD
     Dates: start: 20200910
  3. UPTRAVI [Suspect]
     Active Substance: SELEXIPAG
     Indication: Product used for unknown indication
     Dosage: 200 ?G, BID
     Dates: start: 20221007
  4. OPSUMIT [Concomitant]
     Active Substance: MACITENTAN

REACTIONS (10)
  - Dyspnoea at rest [None]
  - Dyspnoea exertional [None]
  - Headache [None]
  - Nausea [None]
  - Anxiety [None]
  - Stress [None]
  - Fatigue [None]
  - Dizziness postural [None]
  - Chest discomfort [None]
  - Abdominal pain upper [None]
